FAERS Safety Report 7256179-X (Version None)
Quarter: 2011Q1

REPORT INFORMATION
  Report Type: 
  Country: None (occurrence: None)
  Receive Date: 20110129
  Receipt Date: 20100629
  Transmission Date: 20110831
  Serious: No
  Sender: FDA-Public Use
  Company Number: US-ABBOTT-10P-163-0617389-00

PATIENT
  Sex: Female
  Weight: 73.094 kg

DRUGS (2)
  1. HUMIRA [Suspect]
     Indication: CROHN'S DISEASE
     Dates: start: 20090101
  2. UNKNOWN NARCOTICS [Concomitant]
     Indication: CLUSTER HEADACHE

REACTIONS (6)
  - ABDOMINAL PAIN [None]
  - INJECTION SITE ULCER [None]
  - INJECTION SITE HAEMORRHAGE [None]
  - SKIN ULCER [None]
  - INJECTION SITE HAEMATOMA [None]
  - DIARRHOEA [None]
